FAERS Safety Report 12355468 (Version 1)
Quarter: 2016Q2

REPORT INFORMATION
  Report Type: Spontaneous
  Country: FR (occurrence: FR)
  Receive Date: 20160511
  Receipt Date: 20160511
  Transmission Date: 20160815
  Serious: Yes (Hospitalization)
  Sender: FDA-Public Use
  Company Number: FR-NOVOPROD-490516

PATIENT
  Age: 39 Year
  Sex: Male

DRUGS (13)
  1. LEVETIRACETAM. [Concomitant]
     Active Substance: LEVETIRACETAM
     Dosage: 1000 MG, BID (MORNING+EVENING)
     Route: 065
  2. VICTOZA [Suspect]
     Active Substance: LIRAGLUTIDE
     Indication: DIABETES MELLITUS
     Dosage: 1 MG, QD
     Route: 058
     Dates: start: 20160411, end: 20160416
  3. GLICLAZIDE [Concomitant]
     Active Substance: GLICLAZIDE
     Dosage: 30 MG, QD(MORNING)
     Route: 065
  4. STAGID [Concomitant]
     Active Substance: METFORMIN PAMOATE
     Dosage: 700 MG, QD(EVENING)
     Route: 065
  5. RIVOTRIL [Concomitant]
     Active Substance: CLONAZEPAM
     Dosage: 6 DROPS IN THE MORNING, 3 DROPS AT NOON, AND 6 DROPS IN THE EVENING
     Route: 065
  6. BETAHISTINE                        /00141802/ [Concomitant]
     Active Substance: BETAHISTINE
     Dosage: 8 MG, QD(MORNING)
     Route: 065
  7. EPITOMAX [Concomitant]
     Active Substance: TOPIRAMATE
     Dosage: 50 MG, BID(MORNING AND EVENING)
     Route: 065
  8. LOVENOX [Concomitant]
     Active Substance: ENOXAPARIN SODIUM
     Dosage: 400 IU/L IN THE EVENING
     Route: 065
  9. CLOPIDOGREL                        /01220704/ [Concomitant]
     Dosage: 75 MG, QD(MORNING)
     Route: 065
  10. RIVOTRIL [Concomitant]
     Active Substance: CLONAZEPAM
     Dosage: 4 DROPS IN THE MORNING AND 3 DROPS AT NOON
     Route: 065
  11. DEPAKINE                           /00228501/ [Suspect]
     Active Substance: VALPROIC ACID
     Indication: EPILEPSY
     Dosage: 500 MG, BID
     Route: 065
  12. INEXIUM                            /01479303/ [Concomitant]
     Active Substance: ESOMEPRAZOLE
     Dosage: 20 MG, QD(EVENING)
     Route: 065
  13. TAHOR [Concomitant]
     Active Substance: ATORVASTATIN CALCIUM
     Dosage: 40 MG, QD(EVENING)
     Route: 065

REACTIONS (1)
  - Seizure [Recovered/Resolved]

NARRATIVE: CASE EVENT DATE: 20160415
